FAERS Safety Report 6270728-X (Version None)
Quarter: 2009Q3

REPORT INFORMATION
  Report Type: 
  Country: None (occurrence: None)
  Receive Date: 20090716
  Receipt Date: 20090707
  Transmission Date: 20100115
  Serious: Yes (Life-Threatening, Hospitalization)
  Sender: FDA-Public Use
  Company Number: US-EISAI INC.-E7272-00028-SPO-US

PATIENT
  Sex: Female
  Weight: 74 kg

DRUGS (6)
  1. ONTAK [Suspect]
     Route: 041
     Dates: start: 20090218
  2. PREDNISONE-DEXAMETHOSONE [Concomitant]
     Indication: LYMPHOMA
     Route: 048
     Dates: start: 20090330
  3. LISINOPRIL [Concomitant]
     Indication: HYPERTENSION
     Route: 048
     Dates: start: 20081111
  4. AMLODIPINE [Concomitant]
     Route: 048
     Dates: start: 20081223
  5. HYDROCODONE [Concomitant]
     Indication: PAIN
     Dosage: 5-500MG
     Route: 048
     Dates: start: 20090121
  6. HYDROMORPHONE HCL [Concomitant]
     Indication: PAIN
     Route: 048
     Dates: start: 20090202

REACTIONS (5)
  - CEREBROVASCULAR ACCIDENT [None]
  - EMBOLIC STROKE [None]
  - PNEUMONIA [None]
  - RESPIRATORY FAILURE [None]
  - SEPSIS [None]
